FAERS Safety Report 9276440 (Version 1)
Quarter: 2013Q2

REPORT INFORMATION
  Report Type: Spontaneous
  Country: US (occurrence: US)
  Receive Date: 20130507
  Receipt Date: 20130507
  Transmission Date: 20140414
  Serious: No
  Sender: FDA-Public Use
  Company Number: US-ASTRAZENECA-2013SE29068

PATIENT
  Sex: Female

DRUGS (2)
  1. CRESTOR [Suspect]
     Indication: BLOOD CHOLESTEROL ABNORMAL
     Route: 048
     Dates: start: 201209, end: 20130423
  2. LISINOPRIL/HYDROCHLOROTHIAZIDE 20/25 (WATSON LABORATORIES) [Suspect]
     Indication: BLOOD PRESSURE
     Dosage: 25MG /20MG , DAILY, GENERIC
     Route: 048

REACTIONS (2)
  - Depression [Not Recovered/Not Resolved]
  - Fatigue [Not Recovered/Not Resolved]
